FAERS Safety Report 12852797 (Version 1)
Quarter: 2016Q4

REPORT INFORMATION
  Report Type: Spontaneous
  Country: FR (occurrence: FR)
  Receive Date: 20161017
  Receipt Date: 20161017
  Transmission Date: 20170207
  Serious: Yes (Hospitalization)
  Sender: FDA-Public Use
  Company Number: FR-PFIZER INC-2016470713

PATIENT
  Age: 90 Year
  Sex: Female

DRUGS (10)
  1. TRANSIPEG /00754501/ [Concomitant]
     Active Substance: POLYETHYLENE GLYCOL 3350
  2. ZOLOFT [Concomitant]
     Active Substance: SERTRALINE HYDROCHLORIDE
     Dosage: UNK
  3. KARDEGIC [Concomitant]
     Active Substance: ASPIRIN LYSINE
     Dosage: UNK
  4. UVEDOSE [Concomitant]
     Active Substance: CHOLECALCIFEROL
  5. LASILIX RETARD [Suspect]
     Active Substance: FUROSEMIDE
     Dosage: 60 MG, 1X/DAY
     Route: 048
     Dates: end: 20160908
  6. CORDARONE [Concomitant]
     Active Substance: AMIODARONE HYDROCHLORIDE
  7. SERESTA [Suspect]
     Active Substance: OXAZEPAM
     Dosage: 100 MG, 1X/DAY
     Route: 048
     Dates: end: 20160908
  8. MONO TILDIEM LP [Concomitant]
     Active Substance: DILTIAZEM HYDROCHLORIDE
  9. COZAAR [Suspect]
     Active Substance: LOSARTAN POTASSIUM
     Indication: HYPERTENSION
     Dosage: 50 MG, 1X/DAY
     Route: 048
     Dates: end: 20160908
  10. TAHOR [Suspect]
     Active Substance: ATORVASTATIN CALCIUM
     Dosage: 10 MG, 1X/DAY
     Route: 048
     Dates: end: 20160908

REACTIONS (4)
  - Dehydration [Recovering/Resolving]
  - Pneumonia [Unknown]
  - Hypernatraemia [Recovered/Resolved]
  - Prerenal failure [Recovering/Resolving]

NARRATIVE: CASE EVENT DATE: 20160908
